FAERS Safety Report 24344967 (Version 1)
Quarter: 2024Q3

REPORT INFORMATION
  Report Type: Spontaneous
  Country: DE (occurrence: DE)
  Receive Date: 20240920
  Receipt Date: 20240920
  Transmission Date: 20241017
  Serious: Yes (Hospitalization)
  Sender: ELI LILLY AND CO
  Company Number: DE-ELI_LILLY_AND_COMPANY-DE202409005772

PATIENT
  Age: 30 Year

DRUGS (1)
  1. OMVOH [Suspect]
     Active Substance: MIRIKIZUMAB-MRKZ
     Indication: Inflammatory bowel disease
     Dosage: UNK UNK, UNKNOWN
     Route: 065
     Dates: start: 202407

REACTIONS (3)
  - Diarrhoea [Recovered/Resolved]
  - Hypophagia [Unknown]
  - Off label use [Unknown]
